FAERS Safety Report 13411974 (Version 2)
Quarter: 2017Q2

REPORT INFORMATION
  Report Type: Spontaneous
  Country: US (occurrence: US)
  Receive Date: 20170406
  Receipt Date: 20170421
  Transmission Date: 20170830
  Serious: Yes (Death, Hospitalization)
  Sender: FDA-Public Use
  Company Number: PHEH2017US009780

PATIENT
  Age: 53 Year
  Sex: Male
  Weight: 74 kg

DRUGS (1)
  1. SIGNIFOR LAR [Suspect]
     Active Substance: PASIREOTIDE
     Indication: MALIGNANT PITUITARY TUMOUR
     Dosage: 40 MG, EVERY 4 WEEK
     Route: 058
     Dates: start: 201410, end: 201410

REACTIONS (5)
  - Malignant neoplasm progression [Fatal]
  - Fatigue [Unknown]
  - Polyuria [Unknown]
  - Hyperglycaemia [Recovered/Resolved]
  - Polydipsia [Unknown]

NARRATIVE: CASE EVENT DATE: 201410
